FAERS Safety Report 5142256-6 (Version None)
Quarter: 2006Q4

REPORT INFORMATION
  Report Type: 
  Country: None (occurrence: None)
  Receive Date: 20061102
  Receipt Date: 20061026
  Transmission Date: 20070319
  Serious: Yes (Other)
  Sender: FDA-Public Use
  Company Number: US-JNJFOC-20061006370

PATIENT
  Sex: Female
  Weight: 76.66 kg

DRUGS (14)
  1. INFLIXIMAB [Suspect]
     Indication: RHEUMATOID ARTHRITIS
     Route: 042
  2. ENBREL [Concomitant]
  3. POTASSIUM CHLORIDE [Concomitant]
  4. LIPITOR [Concomitant]
  5. FOLIC ACID [Concomitant]
  6. NEXIUM [Concomitant]
     Dosage: DOSAGE 40-80 MG DAILY
  7. TRIAMTERENE AND HYDROCHLOROTHIAZIDE [Concomitant]
     Dosage: DOSAGE 37.5/25 DAILY
  8. NIFEDIPINE [Concomitant]
  9. VITAMIN CAP [Concomitant]
  10. VITAMIN B6 [Concomitant]
  11. CALCIUM+D [Concomitant]
  12. ATENOLOL [Concomitant]
  13. VITAMIN E [Concomitant]
  14. FLAX SEED OIL [Concomitant]

REACTIONS (1)
  - BASAL CELL CARCINOMA [None]
